FAERS Safety Report 14046995 (Version 1)
Quarter: 2017Q4

REPORT INFORMATION
  Report Type: Spontaneous
  Country: RU (occurrence: RU)
  Receive Date: 20171005
  Receipt Date: 20171005
  Transmission Date: 20180321
  Serious: Yes (Death)
  Sender: FDA-Public Use
  Company Number: RU-EISAI MEDICAL RESEARCH-EC-2017-031852

PATIENT
  Age: 29 Year
  Sex: Female

DRUGS (2)
  1. AFINITOR [Interacting]
     Active Substance: EVEROLIMUS
     Indication: RENAL CANCER METASTATIC
     Route: 048
     Dates: start: 20170528, end: 20170715
  2. LENVIMA [Suspect]
     Active Substance: LENVATINIB
     Indication: RENAL CANCER METASTATIC
     Route: 048
     Dates: start: 20170528, end: 20170715

REACTIONS (2)
  - Multiple organ dysfunction syndrome [Fatal]
  - Drug interaction [Fatal]

NARRATIVE: CASE EVENT DATE: 20170928
